FAERS Safety Report 23326521 (Version 4)
Quarter: 2025Q1

REPORT INFORMATION
  Report Type: Spontaneous
  Country: US (occurrence: US)
  Receive Date: 20231221
  Receipt Date: 20250116
  Transmission Date: 20250409
  Serious: Yes (Hospitalization)
  Sender: CSL BEHRING
  Company Number: US-BEH-2023166584

PATIENT
  Age: 52 Year
  Sex: Female

DRUGS (15)
  1. HIZENTRA [Suspect]
     Active Substance: HUMAN IMMUNOGLOBULIN G
     Indication: Hypogammaglobulinaemia
     Dosage: 14 GRAM, QOW
     Route: 058
     Dates: start: 20220927
  2. HIZENTRA [Suspect]
     Active Substance: HUMAN IMMUNOGLOBULIN G
     Dosage: 16 GRAM, QOW
     Route: 058
     Dates: start: 2024
  3. HIZENTRA [Suspect]
     Active Substance: HUMAN IMMUNOGLOBULIN G
     Dosage: 16 G (80 ML), QOW(4 GM/20 ML)
     Route: 058
     Dates: start: 20220902
  4. HIZENTRA [Suspect]
     Active Substance: HUMAN IMMUNOGLOBULIN G
     Dosage: 16 G (80 ML), QOW(4 GM/20 ML)
     Route: 058
     Dates: start: 20220902
  5. ATROPINE [Concomitant]
     Active Substance: ATROPINE
  6. DICYCLOMINE [Concomitant]
     Active Substance: DICYCLOMINE HYDROCHLORIDE
  7. FLUCONAZOLE [Concomitant]
     Active Substance: FLUCONAZOLE
  8. GAMMAGARD [Concomitant]
     Active Substance: HUMAN IMMUNOGLOBULIN G
  9. GAMMAGARD [Concomitant]
     Active Substance: HUMAN IMMUNOGLOBULIN G
  10. LIDO/PRILOCAINE [Concomitant]
  11. OZEMPIC [Concomitant]
     Active Substance: SEMAGLUTIDE
  12. SOLU-MEDROL [Concomitant]
     Active Substance: METHYLPREDNISOLONE SODIUM SUCCINATE
  13. LEVOTHYROXINE [Concomitant]
     Active Substance: LEVOTHYROXINE
     Route: 065
  14. OXYBUTYNIN [Concomitant]
     Active Substance: OXYBUTYNIN
     Route: 065
  15. ESTRADIOL [Concomitant]
     Active Substance: ESTRADIOL

REACTIONS (7)
  - Sepsis [Unknown]
  - Nephrolithiasis [Unknown]
  - Malaise [Not Recovered/Not Resolved]
  - Treatment delayed [Not Recovered/Not Resolved]
  - Pruritus [Unknown]
  - Urticaria [Unknown]
  - Urticaria [Recovered/Resolved]

NARRATIVE: CASE EVENT DATE: 20240401
